FAERS Safety Report 22810255 (Version 3)
Quarter: 2024Q1

REPORT INFORMATION
  Report Type: Spontaneous
  Country: US (occurrence: US)
  Receive Date: 20230810
  Receipt Date: 20240124
  Transmission Date: 20240410
  Serious: No
  Sender: FDA-Public Use
  Company Number: US-PFIZER INC-PV202300136449

PATIENT
  Age: 75 Year
  Sex: Male

DRUGS (1)
  1. XELJANZ [Suspect]
     Active Substance: TOFACITINIB CITRATE
     Indication: Colitis ulcerative
     Dosage: 5MG PO (PER ORAL) BID (TWICE IN A DAY) (60 TABLETS)
     Route: 048

REACTIONS (2)
  - Hypoacusis [Unknown]
  - Condition aggravated [Unknown]
